FAERS Safety Report 8573717-5 (Version None)
Quarter: 2012Q3

REPORT INFORMATION
  Report Type: 
  Country: None (occurrence: None)
  Receive Date: 20120806
  Receipt Date: 20120730
  Transmission Date: 20120928
  Serious: Yes (Other)
  Sender: FDA-Public Use
  Company Number: US-GLAXOSMITHKLINE-A0987960A

PATIENT
  Age: 72 Year
  Sex: Male

DRUGS (1)
  1. COREG CR [Suspect]
     Indication: PRODUCT USED FOR UNKNOWN INDICATION
     Dosage: 40MG UNKNOWN
     Route: 065
     Dates: start: 20100201

REACTIONS (3)
  - TRANSIENT ISCHAEMIC ATTACK [None]
  - CEREBROVASCULAR ACCIDENT [None]
  - HEART RATE DECREASED [None]
